FAERS Safety Report 8564510-8 (Version None)
Quarter: 2012Q3

REPORT INFORMATION
  Report Type: 
  Country: None (occurrence: None)
  Receive Date: 20120803
  Receipt Date: 20120726
  Transmission Date: 20120928
  Serious: Yes (Hospitalization)
  Sender: FDA-Public Use
  Company Number: US-JNJFOC-20111006851

PATIENT
  Sex: Male
  Weight: 97 kg

DRUGS (11)
  1. ZOFRAN [Concomitant]
  2. ANTIBIOTICS [Concomitant]
     Indication: INFLAMMATORY BOWEL DISEASE
  3. MELATONIN [Concomitant]
  4. DIAZEPAM [Concomitant]
  5. INFLIXIMAB, RECOMBINANT [Suspect]
     Indication: INFLAMMATORY BOWEL DISEASE
     Route: 042
     Dates: start: 20110902
  6. VITAMIN [Concomitant]
  7. FLONASE [Concomitant]
  8. AMITRIPTLINE HYDROCHLORIDE TAB [Concomitant]
  9. PAMIDRONATE DISODIUM [Concomitant]
  10. MESALAMINE [Concomitant]
  11. GABAPENTIN [Concomitant]

REACTIONS (1)
  - INFLAMMATORY BOWEL DISEASE [None]
